FAERS Safety Report 23768446 (Version 1)
Quarter: 2024Q2

REPORT INFORMATION
  Report Type: Spontaneous
  Country: US (occurrence: US)
  Receive Date: 20240422
  Receipt Date: 20240422
  Transmission Date: 20240715
  Serious: No
  Sender: FDA-Public Use
  Company Number: US-MELINTA THERAPEUTICS, LLC-US-MLNT-23-00594

PATIENT
  Age: 70 Year
  Sex: Female
  Weight: 75.3 kg

DRUGS (4)
  1. METOPROLOL SUCCINATE [Suspect]
     Active Substance: METOPROLOL SUCCINATE
     Indication: Blood pressure abnormal
     Dosage: 25 MILLIGRAM, BID
     Route: 048
  2. TAGRISSO [Suspect]
     Active Substance: OSIMERTINIB
     Indication: Product used for unknown indication
     Dosage: 80 MILLIGRAM, QD
     Route: 048
     Dates: start: 202204
  3. TAGRISSO [Suspect]
     Active Substance: OSIMERTINIB
     Dosage: 40 MILLIGRAM, QD
     Route: 048
     Dates: start: 2022
  4. HYDROCHLOROTHIAZIDE [Concomitant]
     Active Substance: HYDROCHLOROTHIAZIDE
     Indication: Diuretic therapy
     Dosage: 12.5 MILLIGRAM, QD

REACTIONS (16)
  - Dry skin [Unknown]
  - Onychoclasis [Unknown]
  - Onychomycosis [Unknown]
  - Excessive cerumen production [Unknown]
  - Cough [Recovered/Resolved]
  - Neuropathy peripheral [Recovered/Resolved]
  - Bone pain [Unknown]
  - Pain in extremity [Unknown]
  - Oedema [Recovered/Resolved]
  - Abdominal pain lower [Recovered/Resolved]
  - Vision blurred [Unknown]
  - Alopecia [Unknown]
  - Diarrhoea [Unknown]
  - Dry eye [Unknown]
  - Anxiety [Unknown]
  - Off label use [Unknown]

NARRATIVE: CASE EVENT DATE: 20220401
